FAERS Safety Report 8848720 (Version 1)
Quarter: 2012Q4

REPORT INFORMATION
  Report Type: Spontaneous
  Country: US (occurrence: None)
  Receive Date: 20121017
  Receipt Date: 20121017
  Transmission Date: 20130627
  Serious: No
  Sender: FDA-Public Use
  Company Number: None

PATIENT
  Age: 69 Year
  Sex: Male
  Weight: 81.65 kg

DRUGS (1)
  1. METHYLPREDNISOLONE [Suspect]
     Indication: PAIN ANKLE
     Dates: start: 20120829, end: 20120831

REACTIONS (3)
  - Nausea [None]
  - Vomiting [None]
  - Chills [None]
